FAERS Safety Report 7560790-6 (Version None)
Quarter: 2011Q2

REPORT INFORMATION
  Report Type: 
  Country: None (occurrence: None)
  Receive Date: 20110620
  Receipt Date: 20110620
  Transmission Date: 20111010
  Serious: No
  Sender: FDA-Public Use
  Company Number: None

PATIENT
  Sex: Female
  Weight: 52.1637 kg

DRUGS (1)
  1. HYDROXYCHLOROQUINE SULFATE [Suspect]
     Indication: SJOGREN'S SYNDROME
     Dosage: 200MG 2 @ DAY
     Dates: start: 20110520, end: 20110606

REACTIONS (4)
  - PAIN [None]
  - PRODUCT PHYSICAL ISSUE [None]
  - DYSPEPSIA [None]
  - DIARRHOEA [None]
